APPROVED DRUG PRODUCT: DOCETAXEL
Active Ingredient: DOCETAXEL
Strength: 20MG/2ML (10MG/ML)
Dosage Form/Route: INJECTABLE;INJECTION
Application: A207563 | Product #001
Applicant: NOVAST LABORATORIES LTD
Approved: Aug 31, 2017 | RLD: No | RS: No | Type: DISCN